FAERS Safety Report 6829190-8 (Version None)
Quarter: 2010Q3

REPORT INFORMATION
  Report Type: 
  Country: None (occurrence: None)
  Receive Date: 20100709
  Receipt Date: 20070305
  Transmission Date: 20110219
  Serious: No
  Sender: FDA-Public Use
  Company Number: US-PFIZER INC-2007018960

PATIENT
  Sex: Female
  Weight: 68.95 kg

DRUGS (9)
  1. CHANTIX [Suspect]
     Indication: SMOKING CESSATION THERAPY
     Dates: start: 20070208, end: 20070214
  2. PROMETHAZINE [Concomitant]
     Indication: NAUSEA
     Dates: start: 20070130
  3. LISINOPRIL [Concomitant]
     Indication: HYPERTENSION
     Dates: start: 20070130
  4. ALL OTHER THERAPEUTIC PRODUCTS [Concomitant]
     Indication: HEADACHE
  5. FLUOXETINE HYDROCHLORIDE [Concomitant]
     Indication: DEPRESSION
  6. LUNESTA [Concomitant]
     Indication: SLEEP DISORDER
  7. PRAVASTATIN [Concomitant]
     Indication: BLOOD CHOLESTEROL INCREASED
     Dates: start: 20070130
  8. ALPRAZOLAM [Concomitant]
     Indication: ANXIETY
  9. OXYGEN [Concomitant]
     Indication: CHRONIC OBSTRUCTIVE PULMONARY DISEASE

REACTIONS (1)
  - NAUSEA [None]
